FAERS Safety Report 13626500 (Version 1)
Quarter: 2017Q2

REPORT INFORMATION
  Report Type: Spontaneous
  Country: US (occurrence: US)
  Receive Date: 20170531
  Receipt Date: 20170531
  Transmission Date: 20170830
  Serious: Yes (Other)
  Sender: FDA-Public Use
  Company Number: US-ASTELLAS-1394070

PATIENT
  Sex: Male

DRUGS (5)
  1. TARCEVA [Suspect]
     Active Substance: ERLOTINIB HYDROCHLORIDE
     Route: 065
  2. TARCEVA [Suspect]
     Active Substance: ERLOTINIB HYDROCHLORIDE
     Indication: LUNG NEOPLASM MALIGNANT
     Dosage: DAILY
     Route: 048
     Dates: start: 20140418
  3. FUROSEMIDE. [Concomitant]
     Active Substance: FUROSEMIDE
  4. DHEA [Concomitant]
     Active Substance: PRASTERONE
  5. FISH OIL [Concomitant]
     Active Substance: FISH OIL

REACTIONS (9)
  - Depressed level of consciousness [Unknown]
  - Mastication disorder [Unknown]
  - Rash [Unknown]
  - Feeling abnormal [Unknown]
  - Pain [Unknown]
  - Drug ineffective [Unknown]
  - Stomatitis [Unknown]
  - Blister [Unknown]
  - Neoplasm progression [Unknown]
